FAERS Safety Report 22218798 (Version 2)
Quarter: 2023Q4

REPORT INFORMATION
  Report Type: Spontaneous
  Country: ES (occurrence: ES)
  Receive Date: 20230417
  Receipt Date: 20231003
  Transmission Date: 20240110
  Serious: Yes (Other)
  Sender: FDA-Public Use
  Company Number: ES-EXELIXIS-CABO-23062187

PATIENT
  Age: 66 Year
  Sex: Male

DRUGS (3)
  1. CABOMETYX [Suspect]
     Active Substance: CABOZANTINIB S-MALATE
     Indication: Clear cell renal cell carcinoma
     Dosage: 40 MG, QD
     Route: 048
     Dates: start: 202202
  2. CABOMETYX [Suspect]
     Active Substance: CABOZANTINIB S-MALATE
     Dosage: 20 MG, QD
     Route: 048
  3. NIVOLUMAB [Suspect]
     Active Substance: NIVOLUMAB
     Indication: Clear cell renal cell carcinoma
     Dosage: 240 MG, Q2WEEKS
     Route: 042
     Dates: start: 202202

REACTIONS (3)
  - Anal ulcer [Recovering/Resolving]
  - Skin ulcer [Recovering/Resolving]
  - Hypertransaminasaemia [Recovering/Resolving]
